FAERS Safety Report 11590274 (Version 1)
Quarter: 2015Q4

REPORT INFORMATION
  Report Type: Not Available
  Country: None (occurrence: US)
  Receive Date: 20151002
  Receipt Date: 20151002
  Transmission Date: 20160304
  Serious: No
  Sender: FDA-Public Use
  Company Number: US-MERZ NORTH AMERICA, INC.-15MRZ-00538

PATIENT
  Sex: Female

DRUGS (1)
  1. XEOMIN [Suspect]
     Active Substance: INCOBOTULINUMTOXINA
     Indication: MIGRAINE

REACTIONS (9)
  - Musculoskeletal discomfort [None]
  - Choking sensation [None]
  - Vomiting [None]
  - Nausea [None]
  - Vision blurred [None]
  - Dysphagia [None]
  - Blindness [None]
  - Migraine [None]
  - Dry eye [None]
